FAERS Safety Report 8464844-1 (Version None)
Quarter: 2012Q2

REPORT INFORMATION
  Report Type: 
  Country: None (occurrence: None)
  Receive Date: 20120626
  Receipt Date: 20120618
  Transmission Date: 20120825
  Serious: Yes (Death, Hospitalization, Other)
  Sender: FDA-Public Use
  Company Number: JP-JNJFOC-20120610855

PATIENT
  Age: 88 Year
  Sex: Female

DRUGS (7)
  1. NITRAZEPAM [Concomitant]
     Indication: INSOMNIA
     Route: 048
     Dates: start: 20100811, end: 20110329
  2. NORVASC [Concomitant]
     Indication: HYPERTENSION
     Route: 048
     Dates: start: 20100811, end: 20110329
  3. RISPERDAL [Suspect]
     Indication: PERSECUTORY DELUSION
     Route: 048
     Dates: start: 20100811, end: 20100831
  4. ZOLPIDEM [Concomitant]
     Indication: INSOMNIA
     Route: 048
     Dates: start: 20100811, end: 20110329
  5. VEGETAMIN-B [Suspect]
     Indication: INSOMNIA
     Route: 048
     Dates: start: 20100811, end: 20100924
  6. LEVOTHYROXINE SODIUM [Concomitant]
     Indication: HYPOTHYROIDISM
     Route: 048
     Dates: start: 20100811, end: 20110514
  7. PRIMPERAN TAB [Concomitant]
     Indication: NAUSEA
     Route: 048
     Dates: start: 20100811, end: 20110514

REACTIONS (7)
  - FEMORAL NECK FRACTURE [None]
  - GAIT DISTURBANCE [None]
  - FALL [None]
  - PNEUMONIA ASPIRATION [None]
  - COGNITIVE DISORDER [None]
  - INFLAMMATION [None]
  - SOMNOLENCE [None]
